FAERS Safety Report 18418535 (Version 2)
Quarter: 2021Q1

REPORT INFORMATION
  Report Type: Other
  Country: CA (occurrence: CA)
  Receive Date: 20201023
  Receipt Date: 20210301
  Transmission Date: 20210419
  Serious: Yes (Other)
  Sender: FDA-Public Use
  Company Number: CA-CELLTRION INC.-2020CA029153

PATIENT

DRUGS (18)
  1. ACETAMINOPHEN. [Concomitant]
     Active Substance: ACETAMINOPHEN
     Dosage: 650.0 MILLIGRAM
     Route: 048
  2. HEPARIN [Concomitant]
     Active Substance: HEPARIN SODIUM
     Dosage: 0.5 ML, 1 EVERY 12 HOURS
     Route: 058
  3. TYLENOL [Concomitant]
     Active Substance: ACETAMINOPHEN
     Dosage: 975.0 MILLIGRAM, 1 EVERY 6 HOURS
     Route: 048
  4. RITUXIMAB (UNKNOWN) [Suspect]
     Active Substance: RITUXIMAB
     Indication: SJOGREN^S SYNDROME
     Dosage: 675.0 MILLIGRAM, 1 EVERY 1 WEEKS
     Route: 042
  5. OMEGA 3 [DOCOSAHEXAENOIC ACID;EICOSAPENTAENOIC ACID] [Concomitant]
     Active Substance: DOCONEXENT\ICOSAPENT
     Dosage: 2.0 GRAM, 1 EVERY 1 DAYS
     Route: 048
  6. FLOMAX [Concomitant]
     Active Substance: TAMSULOSIN HYDROCHLORIDE
     Dosage: 0.4 MILLIGRAM, 1 EVERY 1 DAYS
     Route: 048
  7. RISEDRONATE SODIUM. [Concomitant]
     Active Substance: RISEDRONATE SODIUM
     Dosage: 35.0 MILLIGRAM, 1 EVERY 1 WEEKS
     Route: 048
  8. RITUXIMAB (UNKNOWN) [Suspect]
     Active Substance: RITUXIMAB
     Indication: PERIPHERAL SENSORIMOTOR NEUROPATHY
     Dosage: 1000.0 MILLIGRAM, 1 EVERY 6 MONTHS
     Route: 042
  9. METHYLPREDNISOLONE. [Concomitant]
     Active Substance: METHYLPREDNISOLONE
     Dosage: 100.0 MILLIGRAM
     Route: 042
  10. OSCAL [CALCIUM CARBONATE] [Concomitant]
     Dosage: 500.0 GRAM, 1 EVERY 1 DAYS
     Route: 065
  11. VITAMIN D3 [Concomitant]
     Active Substance: CHOLECALCIFEROL
     Dosage: 1000.0 IU (INTERNATIONAL UNIT), 1 EVERY 1 WEEKS
     Route: 048
  12. ISOPTO TEARS [HYPROMELLOSE] [Concomitant]
     Dosage: 1.0 GTT, 6 EVERY 1 DAYS
     Route: 047
  13. MACROGOL [Concomitant]
     Active Substance: POLYETHYLENE GLYCOLS
     Dosage: 17.0 GRAM, 1 EVERY 1 DAYS
     Route: 048
  14. PANTOLOC [PANTOPRAZOLE] [Concomitant]
     Active Substance: PANTOPRAZOLE SODIUM
     Dosage: 40.0 MILLIGRAM, 1 EVERY 1 DAYS
     Route: 048
  15. PREDNISONE. [Concomitant]
     Active Substance: PREDNISONE
     Dosage: 10.0 MILLIGRAM, 1 EVERY 1 DAYS
     Route: 048
  16. RITUXIMAB (UNKNOWN) [Suspect]
     Active Substance: RITUXIMAB
     Dosage: 1000.0 MILLIGRAM
     Route: 042
  17. PROCYTOX [Concomitant]
     Active Substance: CYCLOPHOSPHAMIDE
     Dosage: 100.0 MILLIGRAM
     Route: 048
  18. SULFAMETHOXAZOLE;TRIMETHOPRIM [Concomitant]
     Active Substance: SULFAMETHOXAZOLE\TRIMETHOPRIM
     Dosage: 3 EVERY 1 WEEKS
     Route: 048

REACTIONS (5)
  - Kidney infection [Unknown]
  - Renal mass [Unknown]
  - Off label use [Unknown]
  - Intentional product use issue [Unknown]
  - Nephrolithiasis [Unknown]
